FAERS Safety Report 9289071 (Version 1)
Quarter: 2013Q2

REPORT INFORMATION
  Report Type: Spontaneous
  Country: US (occurrence: US)
  Receive Date: 20130514
  Receipt Date: 20130514
  Transmission Date: 20140414
  Serious: No
  Sender: FDA-Public Use
  Company Number: US-ASTRAZENECA-2013SE31366

PATIENT
  Age: 53 Year
  Sex: Female
  Weight: 93 kg

DRUGS (8)
  1. NEXIUM [Suspect]
     Indication: GASTROOESOPHAGEAL REFLUX DISEASE
     Route: 048
  2. CRESTOR [Suspect]
     Indication: BLOOD CHOLESTEROL ABNORMAL
     Route: 048
     Dates: start: 201304
  3. CLARITIN [Concomitant]
     Indication: SEASONAL ALLERGY
     Route: 048
  4. SYNTHROID [Concomitant]
     Indication: THYROID DISORDER
     Dosage: 0.150 DAILY
     Route: 048
  5. AMARYL [Concomitant]
     Indication: DIABETES MELLITUS
     Route: 048
  6. GLUCOPHAGE [Concomitant]
     Indication: DIABETES MELLITUS
     Dosage: 750 MG 3 TAB DAILY
     Route: 048
  7. COREG [Concomitant]
     Indication: HYPERTENSION
     Dosage: UNKNOWN DAILY
     Route: 048
  8. HYZAAR [Concomitant]
     Indication: HYPERTENSION
     Dosage: 100/25 DAILY
     Route: 048

REACTIONS (1)
  - Blood cholesterol increased [Unknown]
